FAERS Safety Report 21130366 (Version 1)
Quarter: 2022Q3

REPORT INFORMATION
  Report Type: Spontaneous
  Country: US (occurrence: None)
  Receive Date: 20220726
  Receipt Date: 20220726
  Transmission Date: 20221027
  Serious: Yes (Hospitalization)
  Sender: FDA-Public Use
  Company Number: US-VistaPharm, Inc.-VER202207-000633

PATIENT
  Age: 41 Year
  Sex: Female

DRUGS (1)
  1. LACTULOSE [Suspect]
     Active Substance: LACTULOSE
     Indication: Hyperammonaemic encephalopathy
     Dosage: UNKNOWN
     Route: 065

REACTIONS (4)
  - Haemodynamic instability [Unknown]
  - Condition aggravated [Unknown]
  - Gastrointestinal stoma output increased [Unknown]
  - Off label use [Unknown]
